FAERS Safety Report 5409146-2 (Version None)
Quarter: 2007Q3

REPORT INFORMATION
  Report Type: 
  Country: None (occurrence: None)
  Receive Date: 20070713
  Receipt Date: 20070510
  Transmission Date: 20080115
  Serious: Yes (Hospitalization)
  Sender: FDA-Public Use
  Company Number: US-JNJFOC-20061205316

PATIENT
  Age: 46 Year
  Sex: Female
  Weight: 64.8644 kg

DRUGS (4)
  1. ORTHO EVRA [Suspect]
     Indication: CONTRACEPTION
     Dosage: TRANSDERMAL
     Route: 062
     Dates: start: 20041001, end: 20041227
  2. AUGMENTIN '125' [Concomitant]
  3. ACETAMINOPHEN [Concomitant]
  4. TENORMIN [Concomitant]

REACTIONS (1)
  - DEEP VEIN THROMBOSIS [None]
